FAERS Safety Report 15345594 (Version 1)
Quarter: 2018Q3

REPORT INFORMATION
  Report Type: Spontaneous
  Country: US (occurrence: US)
  Receive Date: 20180904
  Receipt Date: 20180904
  Transmission Date: 20181010
  Serious: No
  Sender: FDA-Public Use
  Company Number: US-AMGEN-USASP2018121107

PATIENT
  Age: 65 Year
  Sex: Female

DRUGS (1)
  1. ENBREL [Suspect]
     Active Substance: ETANERCEPT
     Indication: FRACTURED SACRUM
     Dosage: 50 MG, QWK
     Route: 058
     Dates: start: 201804

REACTIONS (2)
  - Off label use [Unknown]
  - Injection site bruising [Recovered/Resolved]

NARRATIVE: CASE EVENT DATE: 2018
